APPROVED DRUG PRODUCT: FLUOROURACIL
Active Ingredient: FLUOROURACIL
Strength: 50MG/ML
Dosage Form/Route: INJECTABLE;INJECTION
Application: A089519 | Product #001
Applicant: ABRAXIS PHARMACEUTICAL PRODUCTS
Approved: Mar 12, 1987 | RLD: No | RS: No | Type: DISCN